FAERS Safety Report 17565599 (Version 4)
Quarter: 2020Q2

REPORT INFORMATION
  Report Type: Spontaneous
  Country: US (occurrence: US)
  Receive Date: 20200320
  Receipt Date: 20200618
  Transmission Date: 20200713
  Serious: Yes (Other)
  Sender: FDA-Public Use
  Company Number: US-PFIZER INC-2020121156

PATIENT
  Age: 61 Year
  Sex: Female

DRUGS (1)
  1. LYRICA [Suspect]
     Active Substance: PREGABALIN
     Dosage: UNK

REACTIONS (6)
  - Insomnia [Unknown]
  - Pain in extremity [Unknown]
  - Spinal claudication [Unknown]
  - Haemangioma of bone [Unknown]
  - Impaired work ability [Unknown]
  - Nephropathy [Unknown]
